FAERS Safety Report 10218049 (Version 1)
Quarter: 2014Q2

REPORT INFORMATION
  Report Type: Spontaneous
  Country: US (occurrence: US)
  Receive Date: 20140605
  Receipt Date: 20140605
  Transmission Date: 20141212
  Serious: No
  Sender: FDA-Public Use
  Company Number: US-BIOGENIDEC-2014BI046964

PATIENT
  Age: 71 Year
  Sex: Male

DRUGS (11)
  1. TECFIDERA [Suspect]
     Indication: MULTIPLE SCLEROSIS
     Route: 048
     Dates: start: 20140304
  2. AMOXICILLIN [Concomitant]
  3. CALCIUM + D3 [Concomitant]
  4. CIPRO [Concomitant]
  5. CRANBERRY [Concomitant]
  6. FINASTERIDE [Concomitant]
  7. HIPREX [Concomitant]
  8. LISINOPRIL [Concomitant]
  9. TOPROL XL [Concomitant]
  10. VESICARE [Concomitant]
  11. VITAMIN D [Concomitant]

REACTIONS (1)
  - Constipation [Unknown]
